FAERS Safety Report 10076412 (Version 1)
Quarter: 2014Q2

REPORT INFORMATION
  Report Type: Report from Study
  Country: US (occurrence: US)
  Receive Date: 20140414
  Receipt Date: 20140414
  Transmission Date: 20141212
  Serious: No
  Sender: FDA-Public Use
  Company Number: US-BAXTER-2012BAX016952

PATIENT
  Age: 46 Year
  Sex: Female

DRUGS (1)
  1. GAMMAGARD LIQUID [Suspect]
     Indication: PRODUCT USED FOR UNKNOWN INDICATION
     Route: 065

REACTIONS (5)
  - Dysgeusia [Recovering/Resolving]
  - Headache [Recovering/Resolving]
  - Hot flush [Recovering/Resolving]
  - Increased appetite [Recovering/Resolving]
  - Photosensitivity reaction [Recovering/Resolving]
